FAERS Safety Report 7107847-1 (Version None)
Quarter: 2010Q4

REPORT INFORMATION
  Report Type: 
  Country: None (occurrence: None)
  Receive Date: 20101117
  Receipt Date: 20100609
  Transmission Date: 20110411
  Serious: Yes (Hospitalization, Other)
  Sender: FDA-Public Use
  Company Number: US-BAYER-200943585NA

PATIENT
  Age: 24 Year
  Sex: Female
  Weight: 54 kg

DRUGS (23)
  1. YASMIN [Suspect]
     Indication: CONTRACEPTION
     Dates: start: 20060301, end: 20061101
  2. LAMICTAL [Concomitant]
     Dates: start: 20080101, end: 20090101
  3. ERRIN [Concomitant]
     Indication: CONTRACEPTION
     Dates: start: 20070101, end: 20080101
  4. CLONAZAPAN [Concomitant]
     Dates: start: 20060101, end: 20070101
  5. ADD MEDICINE NOS [Concomitant]
     Dates: start: 20090101
  6. PAXIL CR [Concomitant]
     Dates: start: 20070101, end: 20100101
  7. ARMOUR THYROID [Concomitant]
     Dates: start: 20050101, end: 20070101
  8. LEVOTHYROXINE [Concomitant]
     Dates: start: 20080101
  9. ANTIBIOTICS [Concomitant]
     Dates: start: 20060101, end: 20070101
  10. ASCORBIC ACID [Concomitant]
     Dates: start: 20040101, end: 20080101
  11. NSAID'S [Concomitant]
     Dates: start: 20040101, end: 20080101
  12. ST JOHNS WORT [Concomitant]
     Dates: start: 20030101
  13. THYROID MEDICATIONS NOS [Concomitant]
     Dates: start: 20040101
  14. DULCOLAX [Concomitant]
  15. ACETAMINOPHEN [Concomitant]
     Dosage: DURING HOSPITAL STAY IN OCT-2006
  16. SENNOSIDES DOCUSATE [Concomitant]
     Dosage: DURING HOSPITAL STAY IN OCT-2006
  17. ZOFRAN [Concomitant]
     Dosage: DURING HOSPITAL STAY IN OCT-2006
     Route: 042
  18. NALBUPHINE HYDROCHLORIDE [Concomitant]
     Dosage: DURING HOSPITAL STAY IN OCT-2006
     Route: 042
  19. PROCHLORPERAZINE EDISYLATE [Concomitant]
     Dosage: DURING HOSPITAL STAY IN OCT-2006
  20. ENOXAPARIN SODIUM [Concomitant]
     Dosage: DURING HOSPITAL STAY IN OCT-2006
  21. LORAZEPAM [Concomitant]
     Dosage: DURING HOSPITAL STAY IN OCT-2006
  22. TORADOL [Concomitant]
  23. SYNTHROID [Concomitant]

REACTIONS (14)
  - AMNESIA [None]
  - ANXIETY [None]
  - ASTHENIA [None]
  - CEREBROVASCULAR ACCIDENT [None]
  - DEEP VEIN THROMBOSIS [None]
  - DEPRESSION [None]
  - DIZZINESS [None]
  - FATIGUE [None]
  - GAIT DISTURBANCE [None]
  - HEADACHE [None]
  - PARAESTHESIA [None]
  - VERTIGO [None]
  - VISION BLURRED [None]
  - VISUAL ACUITY REDUCED [None]
